FAERS Safety Report 6710730-4 (Version None)
Quarter: 2010Q2

REPORT INFORMATION
  Report Type: 
  Country: None (occurrence: None)
  Receive Date: 20100504
  Receipt Date: 20100504
  Transmission Date: 20101027
  Serious: Yes (Disabling, Other)
  Sender: FDA-Public Use
  Company Number: None

PATIENT
  Age: 38 Year
  Sex: Male
  Weight: 159.1 kg

DRUGS (2)
  1. METFORMIN HCL [Suspect]
     Indication: DIABETES MELLITUS
     Dosage: 500 MG 3 TIMES A DAY BY MOUTH
     Route: 048
     Dates: start: 20100408
  2. GLIPIZIDE [Suspect]
     Dosage: 10 MG 3 TIMES A DAY BY MOUTH
     Route: 048
     Dates: start: 20100417

REACTIONS (2)
  - SOMNOLENCE [None]
  - VISION BLURRED [None]
